FAERS Safety Report 9814869 (Version 1)
Quarter: 2014Q1

REPORT INFORMATION
  Report Type: Spontaneous
  Country: IL (occurrence: IL)
  Receive Date: 20140113
  Receipt Date: 20140113
  Transmission Date: 20141002
  Serious: Yes (Death)
  Sender: FDA-Public Use
  Company Number: IL-ASTRAZENECA-2014SE02175

PATIENT
  Age: 28 Year
  Sex: 0

DRUGS (2)
  1. PROPOFOL [Suspect]
     Dosage: ADJUSTED IN ACCORDANCE TO THE LEVEL OF SEDATION (RAMSAY SCALE 3)
     Route: 042
  2. PROPOFOL [Suspect]
     Dosage: GRADUALLY INCREASED TO 6.5 MG/KG/HOUR
     Route: 042

REACTIONS (2)
  - Propofol infusion syndrome [Fatal]
  - Cardiogenic shock [Fatal]
